FAERS Safety Report 10576457 (Version 1)
Quarter: 2014Q4

REPORT INFORMATION
  Report Type: Spontaneous
  Country: GB (occurrence: GB)
  Receive Date: 20141111
  Receipt Date: 20141111
  Transmission Date: 20150529
  Serious: Yes (Hospitalization, Other)
  Sender: FDA-Public Use
  Company Number: PHHY2014GB144932

PATIENT
  Age: 47 Year
  Sex: Female

DRUGS (4)
  1. DEPIXOL [Suspect]
     Active Substance: FLUPENTIXOL DECANOATE
     Dosage: 50 MG, QW
     Route: 050
     Dates: start: 20141014
  2. PARACETAMOL [Suspect]
     Active Substance: ACETAMINOPHEN
     Dates: start: 20141018, end: 20141018
  3. DEPIXOL [Suspect]
     Active Substance: FLUPENTIXOL DECANOATE
     Indication: SCHIZOPHRENIA
     Dosage: 20 MG, QW
     Route: 050
     Dates: start: 20140923
  4. DEPIXOL [Suspect]
     Active Substance: FLUPENTIXOL DECANOATE
     Dosage: 40 MG, QW
     Route: 050
     Dates: start: 20140930, end: 201410

REACTIONS (2)
  - Liver disorder [Unknown]
  - Suicide attempt [Unknown]

NARRATIVE: CASE EVENT DATE: 201410
